FAERS Safety Report 17032661 (Version 11)
Quarter: 2025Q2

REPORT INFORMATION
  Report Type: Spontaneous
  Country: CA (occurrence: CA)
  Receive Date: 20191114
  Receipt Date: 20250527
  Transmission Date: 20250717
  Serious: Yes (Hospitalization, Other)
  Sender: ALEXION PHARMACEUTICALS
  Company Number: 2019SF62241

PATIENT
  Age: 38 Year

DRUGS (263)
  1. SYMBICORT [Suspect]
     Active Substance: BUDESONIDE\FORMOTEROL FUMARATE DIHYDRATE
     Indication: Product used for unknown indication
  2. SYMBICORT [Suspect]
     Active Substance: BUDESONIDE\FORMOTEROL FUMARATE DIHYDRATE
  3. SYMBICORT [Suspect]
     Active Substance: BUDESONIDE\FORMOTEROL FUMARATE DIHYDRATE
  4. SYMBICORT [Suspect]
     Active Substance: BUDESONIDE\FORMOTEROL FUMARATE DIHYDRATE
  5. SYMBICORT [Suspect]
     Active Substance: BUDESONIDE\FORMOTEROL FUMARATE DIHYDRATE
  6. SYMBICORT [Suspect]
     Active Substance: BUDESONIDE\FORMOTEROL FUMARATE DIHYDRATE
  7. SYMBICORT [Suspect]
     Active Substance: BUDESONIDE\FORMOTEROL FUMARATE DIHYDRATE
  8. SYMBICORT [Suspect]
     Active Substance: BUDESONIDE\FORMOTEROL FUMARATE DIHYDRATE
  9. SYMBICORT [Suspect]
     Active Substance: BUDESONIDE\FORMOTEROL FUMARATE DIHYDRATE
  10. SYMBICORT [Suspect]
     Active Substance: BUDESONIDE\FORMOTEROL FUMARATE DIHYDRATE
  11. SYMBICORT [Suspect]
     Active Substance: BUDESONIDE\FORMOTEROL FUMARATE DIHYDRATE
  12. SYMBICORT [Suspect]
     Active Substance: BUDESONIDE\FORMOTEROL FUMARATE DIHYDRATE
  13. SYMBICORT [Suspect]
     Active Substance: BUDESONIDE\FORMOTEROL FUMARATE DIHYDRATE
  14. BUDESONIDE\FORMOTEROL FUMARATE [Suspect]
     Active Substance: BUDESONIDE\FORMOTEROL FUMARATE
  15. BUDESONIDE\FORMOTEROL FUMARATE [Suspect]
     Active Substance: BUDESONIDE\FORMOTEROL FUMARATE
  16. BUDESONIDE\FORMOTEROL FUMARATE [Suspect]
     Active Substance: BUDESONIDE\FORMOTEROL FUMARATE
  17. CICLESONIDE [Suspect]
     Active Substance: CICLESONIDE
     Indication: Product used for unknown indication
  18. CICLESONIDE [Suspect]
     Active Substance: CICLESONIDE
  19. CICLESONIDE [Suspect]
     Active Substance: CICLESONIDE
  20. CICLESONIDE [Suspect]
     Active Substance: CICLESONIDE
  21. CICLESONIDE [Suspect]
     Active Substance: CICLESONIDE
  22. CICLESONIDE [Suspect]
     Active Substance: CICLESONIDE
  23. CICLESONIDE [Suspect]
     Active Substance: CICLESONIDE
  24. CICLESONIDE [Suspect]
     Active Substance: CICLESONIDE
  25. CICLESONIDE [Suspect]
     Active Substance: CICLESONIDE
  26. CICLESONIDE [Suspect]
     Active Substance: CICLESONIDE
  27. CICLESONIDE [Suspect]
     Active Substance: CICLESONIDE
  28. ENTYVIO [Suspect]
     Active Substance: VEDOLIZUMAB
     Indication: Colitis ulcerative
  29. ENTYVIO [Suspect]
     Active Substance: VEDOLIZUMAB
     Indication: Colitis ulcerative
  30. ENTYVIO [Suspect]
     Active Substance: VEDOLIZUMAB
  31. ENTYVIO [Suspect]
     Active Substance: VEDOLIZUMAB
  32. ENTYVIO [Suspect]
     Active Substance: VEDOLIZUMAB
  33. ENTYVIO [Suspect]
     Active Substance: VEDOLIZUMAB
  34. ENTYVIO [Suspect]
     Active Substance: VEDOLIZUMAB
  35. ENTYVIO [Suspect]
     Active Substance: VEDOLIZUMAB
  36. ENTYVIO [Suspect]
     Active Substance: VEDOLIZUMAB
  37. ENTYVIO [Suspect]
     Active Substance: VEDOLIZUMAB
  38. ENTYVIO [Suspect]
     Active Substance: VEDOLIZUMAB
  39. ENTYVIO [Suspect]
     Active Substance: VEDOLIZUMAB
  40. ENTYVIO [Suspect]
     Active Substance: VEDOLIZUMAB
  41. ENTYVIO [Suspect]
     Active Substance: VEDOLIZUMAB
  42. ENTYVIO [Suspect]
     Active Substance: VEDOLIZUMAB
  43. ENTYVIO [Suspect]
     Active Substance: VEDOLIZUMAB
  44. ENTYVIO [Suspect]
     Active Substance: VEDOLIZUMAB
  45. ENTYVIO [Suspect]
     Active Substance: VEDOLIZUMAB
  46. ENTYVIO [Suspect]
     Active Substance: VEDOLIZUMAB
  47. ENTYVIO [Suspect]
     Active Substance: VEDOLIZUMAB
  48. ENTYVIO [Suspect]
     Active Substance: VEDOLIZUMAB
  49. ENTYVIO [Suspect]
     Active Substance: VEDOLIZUMAB
  50. ENTYVIO [Suspect]
     Active Substance: VEDOLIZUMAB
  51. ENTYVIO [Suspect]
     Active Substance: VEDOLIZUMAB
  52. SINGULAIR [Suspect]
     Active Substance: MONTELUKAST SODIUM
     Indication: Asthma
     Dosage: 10 MILLIGRAM, QD
  53. SINGULAIR [Suspect]
     Active Substance: MONTELUKAST SODIUM
     Dosage: 20 MILLIGRAM, QD
  54. SINGULAIR [Suspect]
     Active Substance: MONTELUKAST SODIUM
     Dosage: 20 MILLIGRAM, QD
  55. SINGULAIR [Suspect]
     Active Substance: MONTELUKAST SODIUM
     Dosage: 10 MILLIGRAM, QD
  56. SINGULAIR [Suspect]
     Active Substance: MONTELUKAST SODIUM
     Dosage: 10 MILLIGRAM, QD
  57. SINGULAIR [Suspect]
     Active Substance: MONTELUKAST SODIUM
     Dosage: 10 MILLIGRAM, QD
  58. SINGULAIR [Suspect]
     Active Substance: MONTELUKAST SODIUM
     Dosage: 10 MILLIGRAM, QD
  59. SINGULAIR [Suspect]
     Active Substance: MONTELUKAST SODIUM
     Dosage: 10 MILLIGRAM, QD
  60. SINGULAIR [Suspect]
     Active Substance: MONTELUKAST SODIUM
     Dosage: 10 MILLIGRAM, QD
  61. SINGULAIR [Suspect]
     Active Substance: MONTELUKAST SODIUM
     Dosage: 10 MILLIGRAM, QD
  62. SINGULAIR [Suspect]
     Active Substance: MONTELUKAST SODIUM
     Dosage: 10 MILLIGRAM, QD
  63. SINGULAIR [Suspect]
     Active Substance: MONTELUKAST SODIUM
     Dosage: 10 MILLIGRAM, QD
  64. SINGULAIR [Suspect]
     Active Substance: MONTELUKAST SODIUM
     Dosage: 10 MILLIGRAM, QD
  65. FOLIC ACID [Suspect]
     Active Substance: FOLIC ACID
     Indication: Product used for unknown indication
     Dosage: 5 MILLIGRAM, QD
  66. FOLIC ACID [Suspect]
     Active Substance: FOLIC ACID
     Dosage: 5 MILLIGRAM, QD
  67. FOLIC ACID [Suspect]
     Active Substance: FOLIC ACID
     Dosage: 5 MILLIGRAM, QD
  68. FOLIC ACID [Suspect]
     Active Substance: FOLIC ACID
     Dosage: 5 MILLIGRAM, QD
  69. FOLIC ACID [Suspect]
     Active Substance: FOLIC ACID
     Dosage: 5 MILLIGRAM, QD
  70. FOLIC ACID [Suspect]
     Active Substance: FOLIC ACID
     Dosage: 5 MILLIGRAM, QD
  71. FOLIC ACID [Suspect]
     Active Substance: FOLIC ACID
     Dosage: 5 MILLIGRAM, QD
  72. FOLIC ACID [Suspect]
     Active Substance: FOLIC ACID
     Dosage: 5 MILLIGRAM, QD
  73. FOLIC ACID [Suspect]
     Active Substance: FOLIC ACID
     Dosage: 5 MILLIGRAM, QD
  74. FOLIC ACID [Suspect]
     Active Substance: FOLIC ACID
     Dosage: 5 MILLIGRAM, QD
  75. FOLIC ACID [Suspect]
     Active Substance: FOLIC ACID
     Dosage: 5 MILLIGRAM, QD
  76. FOLIC ACID [Suspect]
     Active Substance: FOLIC ACID
     Dosage: 5 MILLIGRAM, QD
  77. METHOTREXATE [Suspect]
     Active Substance: METHOTREXATE
     Indication: Vasculitis
     Dosage: 15 MILLIGRAM, QW
  78. METHOTREXATE [Suspect]
     Active Substance: METHOTREXATE
     Dosage: 25 MILLIGRAM, QW
  79. METHOTREXATE [Suspect]
     Active Substance: METHOTREXATE
  80. METHOTREXATE [Suspect]
     Active Substance: METHOTREXATE
     Dosage: 15 MILLIGRAM, QW
  81. METHOTREXATE [Suspect]
     Active Substance: METHOTREXATE
     Dosage: 25 MILLIGRAM, QW
  82. METHOTREXATE [Suspect]
     Active Substance: METHOTREXATE
     Dosage: 15 MILLIGRAM, QW
  83. METHOTREXATE [Suspect]
     Active Substance: METHOTREXATE
     Dosage: 25 MILLIGRAM, QW
  84. METHOTREXATE [Suspect]
     Active Substance: METHOTREXATE
     Dosage: 15 MILLIGRAM, QW
  85. METHOTREXATE [Suspect]
     Active Substance: METHOTREXATE
     Dosage: 25 MILLIGRAM, QW
  86. METHOTREXATE [Suspect]
     Active Substance: METHOTREXATE
     Dosage: 15 MILLIGRAM, QW
  87. METHOTREXATE [Suspect]
     Active Substance: METHOTREXATE
     Dosage: 25 MILLIGRAM, QW
  88. METHOTREXATE [Suspect]
     Active Substance: METHOTREXATE
     Dosage: 25 MILLIGRAM, QW
  89. METHOTREXATE [Suspect]
     Active Substance: METHOTREXATE
     Dosage: 25 MILLIGRAM, QW
  90. METHOTREXATE [Suspect]
     Active Substance: METHOTREXATE
     Dosage: 15 MILLIGRAM, QW
  91. METHOTREXATE [Suspect]
     Active Substance: METHOTREXATE
     Dosage: 25 MILLIGRAM, QW
  92. METHOTREXATE [Suspect]
     Active Substance: METHOTREXATE
     Dosage: 15 MILLIGRAM, QW
  93. METHOTREXATE [Suspect]
     Active Substance: METHOTREXATE
     Dosage: 25 MILLIGRAM, QW
  94. METHOTREXATE [Suspect]
     Active Substance: METHOTREXATE
     Dosage: 15 MILLIGRAM, QW
  95. METHOTREXATE [Suspect]
     Active Substance: METHOTREXATE
     Dosage: 15 MILLIGRAM, QW
  96. METHOTREXATE [Suspect]
     Active Substance: METHOTREXATE
     Dosage: 15 MILLIGRAM, QW
  97. PREDNISONE [Suspect]
     Active Substance: PREDNISONE
     Indication: Product used for unknown indication
  98. PREDNISONE [Suspect]
     Active Substance: PREDNISONE
     Dosage: 10 MILLIGRAM, QD
  99. PREDNISONE [Suspect]
     Active Substance: PREDNISONE
  100. PREDNISONE [Suspect]
     Active Substance: PREDNISONE
  101. PREDNISONE [Suspect]
     Active Substance: PREDNISONE
  102. PREDNISONE [Suspect]
     Active Substance: PREDNISONE
  103. PREDNISONE [Suspect]
     Active Substance: PREDNISONE
  104. PREDNISONE [Suspect]
     Active Substance: PREDNISONE
     Dosage: 8/12.5 MG DAILY
  105. PREDNISONE [Suspect]
     Active Substance: PREDNISONE
  106. PREDNISONE [Suspect]
     Active Substance: PREDNISONE
  107. PREDNISONE [Suspect]
     Active Substance: PREDNISONE
  108. PREDNISONE [Suspect]
     Active Substance: PREDNISONE
  109. PREDNISONE [Suspect]
     Active Substance: PREDNISONE
  110. PREDNISONE [Suspect]
     Active Substance: PREDNISONE
  111. PREDNISONE [Suspect]
     Active Substance: PREDNISONE
  112. PREDNISONE [Suspect]
     Active Substance: PREDNISONE
  113. PREDNISONE [Suspect]
     Active Substance: PREDNISONE
  114. PREDNISONE [Suspect]
     Active Substance: PREDNISONE
  115. PREDNISONE [Suspect]
     Active Substance: PREDNISONE
  116. PREDNISONE [Suspect]
     Active Substance: PREDNISONE
  117. PREDNISONE [Suspect]
     Active Substance: PREDNISONE
  118. PREDNISONE [Suspect]
     Active Substance: PREDNISONE
  119. PREDNISONE [Suspect]
     Active Substance: PREDNISONE
  120. PREDNISONE [Suspect]
     Active Substance: PREDNISONE
  121. PREDNISONE [Suspect]
     Active Substance: PREDNISONE
  122. PREDNISONE [Suspect]
     Active Substance: PREDNISONE
  123. PREDNISONE [Suspect]
     Active Substance: PREDNISONE
  124. PREDNISONE [Suspect]
     Active Substance: PREDNISONE
  125. PREDNISONE [Suspect]
     Active Substance: PREDNISONE
  126. PREDNISONE [Suspect]
     Active Substance: PREDNISONE
  127. PREDNISONE [Suspect]
     Active Substance: PREDNISONE
  128. PREDNISONE [Suspect]
     Active Substance: PREDNISONE
  129. PREDNISONE [Suspect]
     Active Substance: PREDNISONE
  130. PREDNISONE [Suspect]
     Active Substance: PREDNISONE
  131. PREDNISONE [Suspect]
     Active Substance: PREDNISONE
  132. PREDNISONE [Suspect]
     Active Substance: PREDNISONE
  133. PREDNISONE [Suspect]
     Active Substance: PREDNISONE
  134. PREDNISONE [Suspect]
     Active Substance: PREDNISONE
  135. PREDNISONE [Suspect]
     Active Substance: PREDNISONE
  136. PREDNISONE [Suspect]
     Active Substance: PREDNISONE
  137. PREDNISONE [Suspect]
     Active Substance: PREDNISONE
  138. PREDNISONE [Suspect]
     Active Substance: PREDNISONE
  139. PREDNISONE [Suspect]
     Active Substance: PREDNISONE
  140. PREDNISONE [Suspect]
     Active Substance: PREDNISONE
  141. PREDNISONE [Suspect]
     Active Substance: PREDNISONE
  142. PREDNISONE [Suspect]
     Active Substance: PREDNISONE
  143. PREDNISONE [Suspect]
     Active Substance: PREDNISONE
  144. PREDNISONE [Suspect]
     Active Substance: PREDNISONE
  145. PREDNISONE [Suspect]
     Active Substance: PREDNISONE
  146. PREDNISONE [Suspect]
     Active Substance: PREDNISONE
  147. PREDNISONE [Suspect]
     Active Substance: PREDNISONE
  148. PREDNISONE [Suspect]
     Active Substance: PREDNISONE
  149. PREDNISONE [Suspect]
     Active Substance: PREDNISONE
  150. PREDNISONE [Suspect]
     Active Substance: PREDNISONE
  151. PREDNISONE [Suspect]
     Active Substance: PREDNISONE
  152. PREDNISONE [Suspect]
     Active Substance: PREDNISONE
  153. PREDNISONE [Suspect]
     Active Substance: PREDNISONE
  154. PREDNISONE [Suspect]
     Active Substance: PREDNISONE
  155. PREDNISONE [Suspect]
     Active Substance: PREDNISONE
  156. PREDNISONE [Suspect]
     Active Substance: PREDNISONE
  157. PREDNISONE [Suspect]
     Active Substance: PREDNISONE
  158. PREDNISONE [Suspect]
     Active Substance: PREDNISONE
  159. PREDNISONE [Suspect]
     Active Substance: PREDNISONE
  160. PREDNISONE [Suspect]
     Active Substance: PREDNISONE
  161. PREDNISONE [Suspect]
     Active Substance: PREDNISONE
  162. ALBUTEROL SULFATE [Suspect]
     Active Substance: ALBUTEROL SULFATE
     Indication: Product used for unknown indication
  163. ALBUTEROL SULFATE [Suspect]
     Active Substance: ALBUTEROL SULFATE
     Dosage: 10 MILLIGRAM, BID
  164. ALBUTEROL SULFATE [Suspect]
     Active Substance: ALBUTEROL SULFATE
     Dosage: 10 MILLIGRAM, BID
  165. ALBUTEROL SULFATE [Suspect]
     Active Substance: ALBUTEROL SULFATE
  166. ALBUTEROL SULFATE [Suspect]
     Active Substance: ALBUTEROL SULFATE
  167. ALBUTEROL SULFATE [Suspect]
     Active Substance: ALBUTEROL SULFATE
  168. ALBUTEROL SULFATE [Suspect]
     Active Substance: ALBUTEROL SULFATE
  169. ALBUTEROL SULFATE [Suspect]
     Active Substance: ALBUTEROL SULFATE
  170. ALBUTEROL SULFATE [Suspect]
     Active Substance: ALBUTEROL SULFATE
  171. ALBUTEROL SULFATE [Suspect]
     Active Substance: ALBUTEROL SULFATE
  172. ALBUTEROL SULFATE [Suspect]
     Active Substance: ALBUTEROL SULFATE
  173. ALBUTEROL SULFATE [Suspect]
     Active Substance: ALBUTEROL SULFATE
  174. ALBUTEROL SULFATE [Suspect]
     Active Substance: ALBUTEROL SULFATE
  175. SPIRIVA [Suspect]
     Active Substance: TIOTROPIUM BROMIDE MONOHYDRATE
     Indication: Asthma
  176. SPIRIVA [Suspect]
     Active Substance: TIOTROPIUM BROMIDE MONOHYDRATE
     Dosage: 0.05
  177. SPIRIVA [Suspect]
     Active Substance: TIOTROPIUM BROMIDE MONOHYDRATE
     Dosage: 0.05
  178. SPIRIVA [Suspect]
     Active Substance: TIOTROPIUM BROMIDE MONOHYDRATE
     Dosage: 0.05
  179. SPIRIVA [Suspect]
     Active Substance: TIOTROPIUM BROMIDE MONOHYDRATE
  180. SPIRIVA [Suspect]
     Active Substance: TIOTROPIUM BROMIDE MONOHYDRATE
  181. SPIRIVA [Suspect]
     Active Substance: TIOTROPIUM BROMIDE MONOHYDRATE
  182. SPIRIVA [Suspect]
     Active Substance: TIOTROPIUM BROMIDE MONOHYDRATE
  183. SPIRIVA [Suspect]
     Active Substance: TIOTROPIUM BROMIDE MONOHYDRATE
  184. SPIRIVA [Suspect]
     Active Substance: TIOTROPIUM BROMIDE MONOHYDRATE
  185. SPIRIVA [Suspect]
     Active Substance: TIOTROPIUM BROMIDE MONOHYDRATE
  186. SPIRIVA [Suspect]
     Active Substance: TIOTROPIUM BROMIDE MONOHYDRATE
  187. SPIRIVA [Suspect]
     Active Substance: TIOTROPIUM BROMIDE MONOHYDRATE
  188. TYLENOL [Suspect]
     Active Substance: ACETAMINOPHEN
     Indication: Product used for unknown indication
  189. TYLENOL [Suspect]
     Active Substance: ACETAMINOPHEN
     Dosage: 10
  190. TYLENOL [Suspect]
     Active Substance: ACETAMINOPHEN
     Dosage: 5
  191. TYLENOL [Suspect]
     Active Substance: ACETAMINOPHEN
  192. TYLENOL [Suspect]
     Active Substance: ACETAMINOPHEN
  193. TYLENOL [Suspect]
     Active Substance: ACETAMINOPHEN
  194. TYLENOL [Suspect]
     Active Substance: ACETAMINOPHEN
  195. TYLENOL [Suspect]
     Active Substance: ACETAMINOPHEN
  196. TYLENOL [Suspect]
     Active Substance: ACETAMINOPHEN
  197. TYLENOL [Suspect]
     Active Substance: ACETAMINOPHEN
  198. TYLENOL [Suspect]
     Active Substance: ACETAMINOPHEN
  199. TYLENOL [Suspect]
     Active Substance: ACETAMINOPHEN
  200. UMECLIDINIUM BROMIDE [Suspect]
     Active Substance: UMECLIDINIUM BROMIDE
     Indication: Asthma
     Dosage: 62.5 MICROGRAM, QD
  201. UMECLIDINIUM BROMIDE [Suspect]
     Active Substance: UMECLIDINIUM BROMIDE
     Dosage: 10
  202. UMECLIDINIUM BROMIDE [Suspect]
     Active Substance: UMECLIDINIUM BROMIDE
     Dosage: 10
  203. UMECLIDINIUM BROMIDE [Suspect]
     Active Substance: UMECLIDINIUM BROMIDE
     Dosage: 10
  204. UMECLIDINIUM BROMIDE [Suspect]
     Active Substance: UMECLIDINIUM BROMIDE
     Dosage: UNK UNK, QD
  205. UMECLIDINIUM BROMIDE [Suspect]
     Active Substance: UMECLIDINIUM BROMIDE
     Dosage: UNK UNK, QD
  206. UMECLIDINIUM BROMIDE [Suspect]
     Active Substance: UMECLIDINIUM BROMIDE
     Dosage: UNK UNK, QD
  207. UMECLIDINIUM BROMIDE [Suspect]
     Active Substance: UMECLIDINIUM BROMIDE
     Dosage: UNK UNK, QD
  208. UMECLIDINIUM BROMIDE [Suspect]
     Active Substance: UMECLIDINIUM BROMIDE
     Dosage: UNK UNK, QD
  209. UMECLIDINIUM BROMIDE [Suspect]
     Active Substance: UMECLIDINIUM BROMIDE
     Dosage: UNK UNK, QD
  210. UMECLIDINIUM BROMIDE [Suspect]
     Active Substance: UMECLIDINIUM BROMIDE
     Dosage: UNK UNK, QD
  211. UMECLIDINIUM BROMIDE [Suspect]
     Active Substance: UMECLIDINIUM BROMIDE
     Dosage: 1 DOSAGE FORM, QD
  212. UMECLIDINIUM BROMIDE [Suspect]
     Active Substance: UMECLIDINIUM BROMIDE
     Dosage: 1 DOSAGE FORM, QD
  213. ZENHALE [Suspect]
     Active Substance: FORMOTEROL FUMARATE\MOMETASONE FUROATE
     Indication: Product used for unknown indication
     Dosage: 2 DOSAGE FORM, BID
  214. ZENHALE [Suspect]
     Active Substance: FORMOTEROL FUMARATE\MOMETASONE FUROATE
     Dosage: UNK UNK, BID
  215. ZENHALE [Suspect]
     Active Substance: FORMOTEROL FUMARATE\MOMETASONE FUROATE
     Dosage: UNK UNK, BID
  216. ZENHALE [Suspect]
     Active Substance: FORMOTEROL FUMARATE\MOMETASONE FUROATE
     Dosage: UNK UNK, BID
  217. ZENHALE [Suspect]
     Active Substance: FORMOTEROL FUMARATE\MOMETASONE FUROATE
     Dosage: 2 DOSAGE FORM, BID
  218. ZENHALE [Suspect]
     Active Substance: FORMOTEROL FUMARATE\MOMETASONE FUROATE
     Dosage: 2 DOSAGE FORM, BID
  219. ZENHALE [Suspect]
     Active Substance: FORMOTEROL FUMARATE\MOMETASONE FUROATE
     Dosage: 2 DOSAGE FORM, BID
  220. ZENHALE [Suspect]
     Active Substance: FORMOTEROL FUMARATE\MOMETASONE FUROATE
     Dosage: 2 DOSAGE FORM, BID
  221. ZENHALE [Suspect]
     Active Substance: FORMOTEROL FUMARATE\MOMETASONE FUROATE
     Dosage: UNK UNK, BID
  222. ZENHALE [Suspect]
     Active Substance: FORMOTEROL FUMARATE\MOMETASONE FUROATE
     Dosage: 2 DOSAGE FORM, BID
  223. ZENHALE [Suspect]
     Active Substance: FORMOTEROL FUMARATE\MOMETASONE FUROATE
     Dosage: 2 DOSAGE FORM, BID
  224. ZENHALE [Suspect]
     Active Substance: FORMOTEROL FUMARATE\MOMETASONE FUROATE
     Dosage: 2 DOSAGE FORM, BID
  225. ZENHALE [Suspect]
     Active Substance: FORMOTEROL FUMARATE\MOMETASONE FUROATE
     Dosage: 2 DOSAGE FORM, BID
  226. ACETAMINOPHEN [Suspect]
     Active Substance: ACETAMINOPHEN
     Indication: Product used for unknown indication
  227. ACETAMINOPHEN [Suspect]
     Active Substance: ACETAMINOPHEN
     Indication: Colitis ulcerative
  228. ACETAMINOPHEN [Suspect]
     Active Substance: ACETAMINOPHEN
  229. ACETAMINOPHEN [Suspect]
     Active Substance: ACETAMINOPHEN
  230. ACETAMINOPHEN [Suspect]
     Active Substance: ACETAMINOPHEN
  231. ACETAMINOPHEN [Suspect]
     Active Substance: ACETAMINOPHEN
  232. ACETAMINOPHEN [Suspect]
     Active Substance: ACETAMINOPHEN
  233. ACETAMINOPHEN [Suspect]
     Active Substance: ACETAMINOPHEN
  234. ACETAMINOPHEN [Suspect]
     Active Substance: ACETAMINOPHEN
  235. VEDOLIZUMAB [Suspect]
     Active Substance: VEDOLIZUMAB
  236. VEDOLIZUMAB [Suspect]
     Active Substance: VEDOLIZUMAB
  237. VEDOLIZUMAB [Suspect]
     Active Substance: VEDOLIZUMAB
  238. VEDOLIZUMAB [Suspect]
     Active Substance: VEDOLIZUMAB
  239. VEDOLIZUMAB [Suspect]
     Active Substance: VEDOLIZUMAB
  240. VEDOLIZUMAB [Suspect]
     Active Substance: VEDOLIZUMAB
  241. VEDOLIZUMAB [Suspect]
     Active Substance: VEDOLIZUMAB
  242. NUCALA [Suspect]
     Active Substance: MEPOLIZUMAB
     Indication: Asthma
     Dosage: 100 MILLIGRAM, QMONTH
  243. NUCALA [Suspect]
     Active Substance: MEPOLIZUMAB
  244. NUCALA [Suspect]
     Active Substance: MEPOLIZUMAB
  245. NUCALA [Suspect]
     Active Substance: MEPOLIZUMAB
  246. NUCALA [Suspect]
     Active Substance: MEPOLIZUMAB
  247. NUCALA [Suspect]
     Active Substance: MEPOLIZUMAB
  248. NUCALA [Suspect]
     Active Substance: MEPOLIZUMAB
  249. FOLATE SODIUM [Concomitant]
     Active Substance: FOLATE SODIUM
     Indication: Product used for unknown indication
     Dosage: 5 MILLIGRAM, QD
  250. CALCIUM [Concomitant]
     Active Substance: CALCIUM
     Indication: Supplementation therapy
  251. CALCIUM [Concomitant]
     Active Substance: CALCIUM
     Route: 065
  252. VITAMIN B12 [Concomitant]
     Active Substance: CYANOCOBALAMIN
     Indication: Supplementation therapy
     Dosage: 1000 MICROGRAM, QD
  253. VITAMIN B12 [Concomitant]
     Active Substance: CYANOCOBALAMIN
     Dosage: 1000 MICROGRAM, QD
     Route: 065
  254. VITAMIN D NOS [Concomitant]
     Active Substance: CHOLECALCIFEROL\ERGOCALCIFEROL
     Indication: Supplementation therapy
  255. FERRIC POLYSACCHARIDE COMPLEX [Concomitant]
     Active Substance: FERRIC POLYSACCHARIDE COMPLEX
     Indication: Supplementation therapy
     Dosage: 150 MILLIGRAM, QD
  256. FERRIC POLYSACCHARIDE COMPLEX [Concomitant]
     Active Substance: FERRIC POLYSACCHARIDE COMPLEX
     Dosage: 300 MILLIGRAM, QD
  257. FERRIC POLYSACCHARIDE COMPLEX [Concomitant]
     Active Substance: FERRIC POLYSACCHARIDE COMPLEX
     Dosage: 150 MILLIGRAM, QD
  258. CYANOCOBALAMIN [Concomitant]
     Active Substance: CYANOCOBALAMIN
     Indication: Supplementation therapy
     Dosage: 1000 MILLIGRAM, QD
  259. CYANOCOBALAMIN [Concomitant]
     Active Substance: CYANOCOBALAMIN
     Dosage: 1000 MILLIGRAM, QD
  260. CYANOCOBALAMIN [Concomitant]
     Active Substance: CYANOCOBALAMIN
     Dosage: 1000 MILLIGRAM, QD
  261. CYANOCOBALAMIN [Concomitant]
     Active Substance: CYANOCOBALAMIN
     Dosage: 1000 MILLIGRAM, QD
  262. CYANOCOBALAMIN [Concomitant]
     Active Substance: CYANOCOBALAMIN
     Dosage: 1000 MILLIGRAM, QD
  263. ERGOCALCIFEROL [Concomitant]
     Active Substance: ERGOCALCIFEROL
     Indication: Supplementation therapy

REACTIONS (31)
  - Interstitial lung disease [Unknown]
  - Systolic dysfunction [Unknown]
  - Pericardial effusion [Unknown]
  - Rectal haemorrhage [Unknown]
  - Vasculitis [Unknown]
  - Abdominal pain [Unknown]
  - Anaemia [Unknown]
  - Asthma [Unknown]
  - Blood test abnormal [Unknown]
  - Chest discomfort [Unknown]
  - Condition aggravated [Unknown]
  - Decreased appetite [Unknown]
  - Dyspnoea [Unknown]
  - Dyspnoea exertional [Unknown]
  - Eosinophilia [Unknown]
  - Gastrointestinal disorder [Unknown]
  - Insomnia [Unknown]
  - Iron deficiency [Unknown]
  - Myalgia [Unknown]
  - Obstructive airways disorder [Unknown]
  - Photophobia [Unknown]
  - Pulmonary function test decreased [Unknown]
  - Wheezing [Unknown]
  - Sinusitis [Unknown]
  - Cough [Unknown]
  - Colitis [Unknown]
  - Headache [Unknown]
  - Treatment noncompliance [Unknown]
  - Blood pressure decreased [Unknown]
  - Hypotension [Unknown]
  - Therapeutic product effect incomplete [Unknown]
